FAERS Safety Report 18322385 (Version 3)
Quarter: 2025Q2

REPORT INFORMATION
  Report Type: Report from Study
  Country: US (occurrence: US)
  Receive Date: 20200929
  Receipt Date: 20250415
  Transmission Date: 20250716
  Serious: Yes (Hospitalization, Other)
  Sender: TAKEDA
  Company Number: US-SHIRE-US202031629

PATIENT
  Age: 48 Year
  Sex: Male
  Weight: 121 kg

DRUGS (8)
  1. HUMAN IMMUNOGLOBULIN G [Suspect]
     Active Substance: HUMAN IMMUNOGLOBULIN G
     Indication: Primary immunodeficiency syndrome
     Dosage: 20 GRAM, 1/WEEK
     Dates: start: 20191206
  2. HUMAN IMMUNOGLOBULIN G [Suspect]
     Active Substance: HUMAN IMMUNOGLOBULIN G
     Indication: Immunodeficiency common variable
     Dosage: 22 GRAM, 1/WEEK
  3. METHOCARBAMOL [Concomitant]
     Active Substance: METHOCARBAMOL
  4. RELAFEN [Concomitant]
     Active Substance: NABUMETONE
  5. ACETAMINOPHEN [Concomitant]
     Active Substance: ACETAMINOPHEN
  6. DIPHENHYDRAMINE [Concomitant]
     Active Substance: DIPHENHYDRAMINE
  7. EPINEPHRINE [Concomitant]
     Active Substance: EPINEPHRINE
  8. VITAMIN D2 [Concomitant]
     Active Substance: ERGOCALCIFEROL

REACTIONS (13)
  - Pneumonia [Recovered/Resolved]
  - Influenza [Recovering/Resolving]
  - Arthropathy [Unknown]
  - Respiratory tract infection [Recovering/Resolving]
  - Tenderness [Unknown]
  - Muscle strain [Unknown]
  - Cognitive disorder [Unknown]
  - Musculoskeletal discomfort [Unknown]
  - Pain [Unknown]
  - Upper respiratory tract infection [Unknown]
  - Sinusitis [Unknown]
  - Malaise [Unknown]
  - Illness [Unknown]

NARRATIVE: CASE EVENT DATE: 20201112
